FAERS Safety Report 24117860 (Version 1)
Quarter: 2024Q3

REPORT INFORMATION
  Report Type: Spontaneous
  Country: ES (occurrence: ES)
  Receive Date: 20240722
  Receipt Date: 20240722
  Transmission Date: 20241017
  Serious: Yes (Life-Threatening, Hospitalization)
  Sender: TEVA
  Company Number: None

PATIENT
  Age: 54 Year
  Sex: Male
  Weight: 100 kg

DRUGS (5)
  1. RISPERIDONE [Suspect]
     Active Substance: RISPERIDONE
     Indication: Schizophrenia
     Dosage: 2 MG AT BREAKFAST AND 4 MG AT DINNER
     Route: 048
     Dates: start: 2019, end: 20240619
  2. PALIPERIDONE PALMITATE [Suspect]
     Active Substance: PALIPERIDONE PALMITATE
     Indication: Schizophrenia
     Dosage: EXTENDED-RELEASE INJECTION SUSPENSION
     Route: 030
     Dates: start: 2018, end: 20240521
  3. LORMETAZEPAM [Concomitant]
     Active Substance: LORMETAZEPAM
     Indication: Schizophrenia
     Route: 048
     Dates: start: 2018
  4. VALPROATE SODIUM [Suspect]
     Active Substance: VALPROATE SODIUM
     Indication: Schizophrenia
     Dosage: 500 MG AT BREAKFAST AND 1000 MG AT BEDTIME
     Route: 048
     Dates: start: 2018, end: 20240619
  5. KETAZOLAM [Concomitant]
     Active Substance: KETAZOLAM
     Indication: Schizophrenia
     Route: 048
     Dates: start: 202401

REACTIONS (1)
  - Inappropriate antidiuretic hormone secretion [Recovered/Resolved]

NARRATIVE: CASE EVENT DATE: 20240619
